FAERS Safety Report 10045519 (Version 2)
Quarter: 2014Q2

REPORT INFORMATION
  Report Type: Spontaneous
  Country: DE (occurrence: JP)
  Receive Date: 20140328
  Receipt Date: 20140410
  Transmission Date: 20141212
  Serious: Yes (Hospitalization)
  Sender: FDA-Public Use
  Company Number: JP-FRI-1000065938

PATIENT
  Age: 80 Year
  Sex: Female
  Weight: 40 kg

DRUGS (4)
  1. MEMANTINE [Suspect]
     Indication: DEMENTIA
     Dosage: 20 MG
     Route: 048
     Dates: end: 20140222
  2. ARICEPT [Suspect]
     Indication: DEMENTIA
     Dosage: 5 MG
     Route: 048
     Dates: end: 20140222
  3. RESLIN [Concomitant]
     Dates: end: 20140222
  4. EXCELASE [Concomitant]
     Dates: end: 20140222

REACTIONS (1)
  - Dyskinesia [Recovered/Resolved]
